FAERS Safety Report 24424919 (Version 1)
Quarter: 2024Q4

REPORT INFORMATION
  Report Type: Report from Study
  Country: US (occurrence: US)
  Receive Date: 20241010
  Receipt Date: 20241010
  Transmission Date: 20250115
  Serious: Yes (Other)
  Sender: AURINIA PHARMACEUTICALS
  Company Number: US-OTSUKA PHARMACEUTICAL NETHERLANDS B.V.-AUR-006871

PATIENT
  Age: 28 Year
  Sex: Female

DRUGS (1)
  1. LUPKYNIS [Suspect]
     Active Substance: VOCLOSPORIN
     Indication: Lupus nephritis
     Dosage: 23.7 MILLIGRAM, BID
     Route: 048
     Dates: start: 20221221

REACTIONS (9)
  - Proteinuria [Unknown]
  - Systemic lupus erythematosus [Unknown]
  - Glomerular filtration rate decreased [Unknown]
  - Hypertension [Unknown]
  - Blood creatinine increased [Unknown]
  - Pain [Unknown]
  - Arthralgia [Unknown]
  - Snoring [Unknown]
  - Fatigue [Unknown]

NARRATIVE: CASE EVENT DATE: 20240904
